FAERS Safety Report 7233723-X (Version None)
Quarter: 2011Q1

REPORT INFORMATION
  Report Type: 
  Country: None (occurrence: None)
  Receive Date: 20110119
  Receipt Date: 20110108
  Transmission Date: 20110831
  Serious: No
  Sender: FDA-Public Use
  Company Number: US-B.I. PHARMACEUTICALS,INC./RIDGEFIELD-2011-BP-00864BP

PATIENT
  Sex: Female

DRUGS (4)
  1. PRADAXA [Suspect]
     Indication: ATRIAL FIBRILLATION
     Dosage: 300 MG
     Route: 048
     Dates: start: 20101215, end: 20101229
  2. PRADAXA [Suspect]
     Dosage: 150 MG
     Route: 048
     Dates: start: 20101230, end: 20110108
  3. CRESTOR [Concomitant]
     Indication: BLOOD CHOLESTEROL INCREASED
     Dosage: 10 MG
     Route: 048
     Dates: start: 20101215
  4. METOPROLOL [Concomitant]
     Indication: CARDIAC DISORDER
     Dosage: 50 MG
     Route: 048
     Dates: start: 20101215

REACTIONS (4)
  - GASTROOESOPHAGEAL REFLUX DISEASE [None]
  - ERUCTATION [None]
  - FOREIGN BODY [None]
  - ASTHENIA [None]
